FAERS Safety Report 5802257-9 (Version None)
Quarter: 2008Q3

REPORT INFORMATION
  Report Type: 
  Country: None (occurrence: None)
  Receive Date: 20080702
  Receipt Date: 20080620
  Transmission Date: 20090109
  Serious: Yes (Hospitalization)
  Sender: FDA-Public Use
  Company Number: DSM-2008-00598

PATIENT
  Age: 75 Year
  Sex: Male

DRUGS (4)
  1. VOTUM(OLMESARTAN MEDOXOMIL)(TABLET)(OLMESARTAN MEDOXOMIL) [Suspect]
     Indication: HYPERTENSION
     Dosage: ORAL
     Route: 048
  2. LIPROLOG (INSULIN LISPRO) (INSULIN LISPRO) [Suspect]
     Indication: INSULIN-REQUIRING TYPE 2 DIABETES MELLITUS
     Dates: start: 20050101
  3. BERLINSULIN H BASAL(INSULIN INJECTION, ISOPHANE)(INSULIN INJECTION, IS [Suspect]
     Indication: INSULIN-REQUIRING TYPE 2 DIABETES MELLITUS
  4. VANCOMYCIN (VANCOMYCIN)(VANCOMYCIN) [Concomitant]

REACTIONS (4)
  - CIRCULATORY COLLAPSE [None]
  - DIARRHOEA [None]
  - DIARRHOEA HAEMORRHAGIC [None]
  - HYPOGLYCAEMIA [None]
